FAERS Safety Report 19400121 (Version 2)
Quarter: 2022Q1

REPORT INFORMATION
  Report Type: Spontaneous
  Country: US (occurrence: US)
  Receive Date: 20210610
  Receipt Date: 20220211
  Transmission Date: 20220423
  Serious: No
  Sender: FDA-Public Use
  Company Number: US-PFIZER INC-2021571757

PATIENT
  Age: 74 Year
  Sex: Female
  Weight: 77.11 kg

DRUGS (6)
  1. XELJANZ XR [Suspect]
     Active Substance: TOFACITINIB CITRATE
     Indication: Rheumatoid arthritis
     Dosage: 11 MG, 1X/DAY
  2. METOPROLOL [Concomitant]
     Active Substance: METOPROLOL
     Indication: Blood pressure abnormal
     Dosage: UNK
  3. AMLODIPINE [Concomitant]
     Active Substance: AMLODIPINE BESYLATE
     Indication: Blood pressure abnormal
     Dosage: UNK
  4. GABAPENTIN [Concomitant]
     Active Substance: GABAPENTIN
     Indication: Myalgia
     Dosage: 200 MG, 1X/DAY (TAKE TWO AT NIGHT AND THEY ARE 100 MG)
  5. GABAPENTIN [Concomitant]
     Active Substance: GABAPENTIN
     Indication: Bone pain
  6. GABAPENTIN [Concomitant]
     Active Substance: GABAPENTIN
     Indication: Neuropathy peripheral

REACTIONS (5)
  - Pain [Unknown]
  - Peripheral swelling [Unknown]
  - Nodule [Unknown]
  - Limb discomfort [Unknown]
  - Illness [Unknown]
